FAERS Safety Report 6828101-9 (Version None)
Quarter: 2010Q3

REPORT INFORMATION
  Report Type: 
  Country: None (occurrence: None)
  Receive Date: 20100709
  Receipt Date: 20070130
  Transmission Date: 20110219
  Serious: No
  Sender: FDA-Public Use
  Company Number: US-PFIZER INC-2007009376

PATIENT
  Sex: Male
  Weight: 83.91 kg

DRUGS (4)
  1. CHANTIX [Suspect]
     Indication: SMOKING CESSATION THERAPY
     Dates: start: 20070113
  2. PREVACID [Concomitant]
  3. GABAPENTIN [Concomitant]
  4. LOVASTATIN [Concomitant]
     Dates: start: 20070113

REACTIONS (3)
  - ABNORMAL FAECES [None]
  - FLATULENCE [None]
  - MALAISE [None]
